FAERS Safety Report 10779578 (Version 2)
Quarter: 2015Q1

REPORT INFORMATION
  Report Type: Spontaneous
  Country: US (occurrence: US)
  Receive Date: 20150210
  Receipt Date: 20150210
  Transmission Date: 20150721
  Serious: No
  Sender: FDA-Public Use
  Company Number: US-GLAXOSMITHKLINE-A1076048A

PATIENT

DRUGS (10)
  1. HYOSCYAMINE [Concomitant]
     Active Substance: HYOSCYAMINE
  2. VERAMYST [Suspect]
     Active Substance: FLUTICASONE FUROATE
     Indication: MULTIPLE ALLERGIES
     Route: 045
     Dates: start: 201310, end: 201405
  3. VERAMYST [Suspect]
     Active Substance: FLUTICASONE FUROATE
     Indication: SINUS DISORDER
  4. ADVAIR HFA [Concomitant]
     Active Substance: FLUTICASONE PROPIONATE\SALMETEROL XINAFOATE
  5. ALBUTEROL INHALER [Concomitant]
     Active Substance: ALBUTEROL
  6. HYDROCHLOROTHIAZIDE. [Concomitant]
     Active Substance: HYDROCHLOROTHIAZIDE
  7. MONTELUKAST SODIUM. [Concomitant]
     Active Substance: MONTELUKAST SODIUM
  8. LISINOPRIL. [Concomitant]
     Active Substance: LISINOPRIL
  9. NEXIUM [Concomitant]
     Active Substance: ESOMEPRAZOLE MAGNESIUM
  10. LORATADINE. [Concomitant]
     Active Substance: LORATADINE

REACTIONS (7)
  - Sinusitis [Recovering/Resolving]
  - Sinus headache [Recovering/Resolving]
  - Pyrexia [Recovering/Resolving]
  - Respiratory tract congestion [Recovering/Resolving]
  - Sinus congestion [Recovering/Resolving]
  - Paranasal sinus hypersecretion [Recovering/Resolving]
  - Respiratory tract irritation [Recovering/Resolving]

NARRATIVE: CASE EVENT DATE: 201312
